FAERS Safety Report 11155467 (Version 2)
Quarter: 2015Q3

REPORT INFORMATION
  Report Type: Spontaneous
  Country: IT (occurrence: IT)
  Receive Date: 20150602
  Receipt Date: 20150903
  Transmission Date: 20151125
  Serious: Yes (Hospitalization, Other)
  Sender: FDA-Public Use
  Company Number: IT-PFIZER INC-2015185667

PATIENT
  Age: 87 Year
  Sex: Male

DRUGS (6)
  1. CORDARONE [Suspect]
     Active Substance: AMIODARONE HYDROCHLORIDE
     Indication: SUPRAVENTRICULAR TACHYARRHYTHMIA
     Dosage: 1 DF, DAILY
     Route: 048
     Dates: start: 20111126, end: 20150401
  2. BISOPROLOL HEMIFUMARATE [Concomitant]
     Active Substance: BISOPROLOL FUMARATE
     Indication: CARDIAC FAILURE CHRONIC
     Dosage: UNK
     Dates: start: 20111208
  3. LASITONE [Concomitant]
     Active Substance: FUROSEMIDE\SPIRONOLACTONE
     Indication: CARDIAC FAILURE
     Dosage: UNK
     Dates: start: 20111107
  4. CARDIOASPIRIN [Concomitant]
     Active Substance: ASPIRIN
     Indication: CORONARY ANGIOPLASTY
     Dosage: UNK
     Dates: start: 20111107
  5. TORVAST [Concomitant]
     Active Substance: ATORVASTATIN
     Indication: HYPERLIPASAEMIA
     Dosage: UNK
     Dates: start: 20111126
  6. LASIX [Concomitant]
     Active Substance: FUROSEMIDE
     Indication: OEDEMA DUE TO CARDIAC DISEASE
     Dosage: UNK
     Dates: start: 20111107

REACTIONS (5)
  - Lung disorder [Unknown]
  - Thyroxine free increased [Unknown]
  - Respiratory failure [Unknown]
  - Hyperthyroidism [Unknown]
  - Gastrointestinal disorder [Unknown]

NARRATIVE: CASE EVENT DATE: 20150331
